FAERS Safety Report 7917159-1 (Version None)
Quarter: 2011Q4

REPORT INFORMATION
  Report Type: 
  Country: None (occurrence: None)
  Receive Date: 20111116
  Receipt Date: 20111104
  Transmission Date: 20120403
  Serious: Yes (Hospitalization, Disabling, Other)
  Sender: FDA-Public Use
  Company Number: ES-ELI_LILLY_AND_COMPANY-ES201111001699

PATIENT
  Sex: Female
  Weight: 57 kg

DRUGS (13)
  1. LEXATIN [Concomitant]
     Indication: ANXIETY
     Dosage: 1.5 MG, QD
     Route: 048
     Dates: start: 20110701
  2. VENLAFAXINE HYDROCHLORIDE [Concomitant]
     Indication: MENTAL DISORDER
     Dosage: 225 MG, QD
     Route: 048
     Dates: start: 20110701
  3. LYRICA [Concomitant]
     Indication: SPINAL CORD COMPRESSION
     Dosage: 150 MG, QD
     Route: 048
     Dates: start: 20111001
  4. FORTEO [Suspect]
     Dosage: 20 UG, QD
     Route: 058
     Dates: start: 20110829
  5. TRIPTIZOL [Concomitant]
     Indication: MENTAL DISORDER
     Dosage: 75 MG, QD
     Route: 048
     Dates: start: 20110601
  6. CALCIUM SANDOZ [Concomitant]
     Indication: OSTEOPOROSIS
     Dosage: 1 DF, QD
     Route: 048
     Dates: start: 20100101
  7. OMACOR [Concomitant]
     Dosage: UNK, QD
     Route: 048
  8. NUCLEO C.M.P.                      /00659201/ [Concomitant]
     Indication: VITAMIN SUPPLEMENTATION
     Dosage: 3 DF, QD
     Route: 048
     Dates: start: 20110601
  9. ASPIRIN [Concomitant]
     Indication: ANEURYSM
     Dosage: 300 MG, QD
     Route: 048
     Dates: start: 20050101
  10. FORTEO [Suspect]
     Indication: OSTEOPOROSIS
     Dosage: 20 UG, QD
     Route: 058
     Dates: start: 20100811, end: 20110813
  11. SIMVASTATIN [Concomitant]
     Indication: BLOOD CHOLESTEROL ABNORMAL
     Dosage: 40 MG, QD
     Route: 048
     Dates: start: 20090101
  12. DIAZEPAM [Concomitant]
     Indication: ANXIETY
     Dosage: 5 MG, PRN
     Route: 048
     Dates: start: 20110201
  13. FENTANILO [Concomitant]
     Indication: ANALGESIC THERAPY
     Dosage: 75 MG, EACH 72 HOURS
     Route: 062
     Dates: start: 20100101

REACTIONS (7)
  - ABASIA [None]
  - GASTROINTESTINAL NECROSIS [None]
  - CARDIAC ANEURYSM [None]
  - COLOSTOMY [None]
  - WOUND SECRETION [None]
  - RECTAL ABSCESS [None]
  - EMBOLISM [None]
